FAERS Safety Report 4510997-7 (Version None)
Quarter: 2004Q4

REPORT INFORMATION
  Report Type: 
  Country: None (occurrence: None)
  Receive Date: 20040928
  Receipt Date: 20040629
  Transmission Date: 20050328
  Serious: Yes (Hospitalization)
  Sender: FDA-Public Use
  Company Number: 04P-163-0258171-00

PATIENT
  Age: 78 Year
  Sex: Male
  Weight: 60.3284 kg

DRUGS (10)
  1. HUMIRA [Suspect]
     Indication: RHEUMATOID ARTHRITIS
     Dosage: 40 MG, 1 IN 2 WK, SUBCUTANEOUS
     Route: 058
     Dates: start: 20030401, end: 20031101
  2. HUMIRA [Suspect]
     Indication: RHEUMATOID ARTHRITIS
     Dosage: 40 MG, 1 IN 2 WK, SUBCUTANEOUS
     Route: 058
     Dates: start: 20040223, end: 20040223
  3. SULFASALAZINE [Concomitant]
  4. PREDNISONE [Concomitant]
  5. VENLAFAXINE HYDROCHLORIDE [Concomitant]
  6. CALCIUM CITRATE [Concomitant]
  7. SIMVASTATIN [Concomitant]
  8. VICODIN [Concomitant]
  9. CYANOCOBALAMIN [Concomitant]
  10. METHOTREXATE [Concomitant]

REACTIONS (2)
  - PNEUMONIA BACTERIAL [None]
  - PNEUMONIA PNEUMOCOCCAL [None]
